FAERS Safety Report 9285332 (Version 1)
Quarter: 2013Q2

REPORT INFORMATION
  Report Type: Spontaneous
  Country: US (occurrence: US)
  Receive Date: 20130513
  Receipt Date: 20130513
  Transmission Date: 20140414
  Serious: Yes (Other)
  Sender: FDA-Public Use
  Company Number: US-COVIDIEN/TYCO HEALTHCARE/MALLINCKRODT-T201301817

PATIENT
  Age: 70 Year
  Sex: Male
  Weight: 86.17 kg

DRUGS (21)
  1. MORPHINE SULFATE [Suspect]
     Indication: CHRONIC OBSTRUCTIVE PULMONARY DISEASE
     Dosage: 5 - 20MG Q 4 HRS PRN
     Route: 048
     Dates: start: 20130426
  2. PROVENTIL                          /00139501/ [Concomitant]
     Indication: CHRONIC OBSTRUCTIVE PULMONARY DISEASE
     Dosage: UNK, PRN
  3. ASA [Concomitant]
     Indication: MYOCARDIAL INFARCTION
     Dosage: 325 MG, QD
  4. LANTUS [Concomitant]
     Indication: DIABETES MELLITUS
     Dosage: 50 U, BID
  5. NOVOLOG [Concomitant]
     Indication: DIABETES MELLITUS
     Dosage: SLIDING SCALE
  6. SYMBICORT [Concomitant]
     Indication: CHRONIC OBSTRUCTIVE PULMONARY DISEASE
     Dosage: UNK, BID
  7. PREDNISONE [Concomitant]
     Indication: CHRONIC OBSTRUCTIVE PULMONARY DISEASE
     Dosage: 30 MG, QD
  8. SPIRIVA HANDIHALER [Concomitant]
     Indication: CHRONIC OBSTRUCTIVE PULMONARY DISEASE
     Dosage: UNK, QD
  9. TRAMADOL [Concomitant]
     Indication: NEUROPATHY PERIPHERAL
     Dosage: 50 MG, BID
  10. LASIX                              /00032601/ [Concomitant]
     Indication: DIURETIC THERAPY
     Dosage: 40 MG, Q AM
  11. VITAMIN D /00107901/ [Concomitant]
     Indication: SUPPLEMENTATION THERAPY
     Dosage: UNK, QD
  12. RANITIDINE [Concomitant]
     Indication: GASTROOESOPHAGEAL REFLUX DISEASE
     Dosage: 150 MG, BID
  13. FLONASE [Concomitant]
     Indication: CHRONIC OBSTRUCTIVE PULMONARY DISEASE
     Dosage: 2 SPRAYS QD
  14. FISH OIL [Concomitant]
     Indication: SUPPLEMENTATION THERAPY
     Dosage: 2 TABS QD
  15. DIGOXIN [Concomitant]
     Indication: HEART RATE
     Dosage: 1.225 MG, QD
  16. METOLAZONE [Concomitant]
     Indication: DIURETIC THERAPY
     Dosage: 2.5 MG, PRN
  17. ALBUTEROL                          /00139501/ [Concomitant]
     Indication: CHRONIC OBSTRUCTIVE PULMONARY DISEASE
     Dosage: UNK, PRN
  18. MUCINEX [Concomitant]
     Indication: NASAL CONGESTION
     Dosage: UNK, BID
  19. POTASSIUM CHLORIDE [Concomitant]
     Indication: SUPPLEMENTATION THERAPY
     Dosage: 20 MEQ, QD
  20. ZOLADINE [Concomitant]
     Indication: NEUROPATHY PERIPHERAL
     Dosage: 12 MG, Q HS
  21. PRAVASTATIN [Concomitant]
     Indication: BLOOD CHOLESTEROL
     Dosage: 40 MG, QD

REACTIONS (1)
  - Blood glucose increased [Not Recovered/Not Resolved]
